FAERS Safety Report 12286872 (Version 1)
Quarter: 2016Q2

REPORT INFORMATION
  Report Type: Spontaneous
  Country: US (occurrence: US)
  Receive Date: 20160420
  Receipt Date: 20160420
  Transmission Date: 20160815
  Serious: No
  Sender: FDA-Public Use
  Company Number: US-DRREDDYS-USA/USA/16/0077395

PATIENT
  Age: 24 Year
  Sex: Female

DRUGS (2)
  1. ISOTRETINOIN [Concomitant]
     Active Substance: ISOTRETINOIN
     Indication: PRODUCT USED FOR UNKNOWN INDICATION
     Route: 065
     Dates: start: 20150625
  2. ZENATANE [Suspect]
     Active Substance: ISOTRETINOIN
     Indication: ACNE
     Route: 065
     Dates: start: 20150527

REACTIONS (1)
  - Blood triglycerides increased [Unknown]

NARRATIVE: CASE EVENT DATE: 20160210
